FAERS Safety Report 21274994 (Version 1)
Quarter: 2022Q3

REPORT INFORMATION
  Report Type: Spontaneous
  Country: US (occurrence: US)
  Receive Date: 20220831
  Receipt Date: 20220831
  Transmission Date: 20221026
  Serious: No
  Sender: FDA-Public Use
  Company Number: US-AMERICAN REGENT INC-2022000180

PATIENT
  Age: 70 Year
  Sex: Female

DRUGS (2)
  1. FERRIC CARBOXYMALTOSE [Suspect]
     Active Substance: FERRIC CARBOXYMALTOSE
     Indication: Product used for unknown indication
     Dosage: 750 MILLIGRAM (OVER 15 MINUTES IN 100ML NORMAL SALINE AT A RATE OF 400MG/HOUR), SINGLE
     Route: 042
     Dates: start: 20220107, end: 20220107
  2. FERRIC CARBOXYMALTOSE [Suspect]
     Active Substance: FERRIC CARBOXYMALTOSE
     Dosage: 750 MILLIGRAM (OVER 15 MINUTES IN 100ML NORMAL SALINE AT A RATE OF 400MG/HOUR), SINGLE
     Route: 042
     Dates: start: 20220114, end: 20220114

REACTIONS (2)
  - Nausea [Not Recovered/Not Resolved]
  - Vomiting [Recovered/Resolved]

NARRATIVE: CASE EVENT DATE: 20220101
